FAERS Safety Report 9841800 (Version 1)
Quarter: 2013Q4

REPORT INFORMATION
  Report Type: Spontaneous
  Country: US (occurrence: None)
  Receive Date: 20131219
  Receipt Date: 20131219
  Transmission Date: 20140711
  Serious: Yes (Death)
  Sender: FDA-Public Use
  Company Number: 163-20785-12121383

PATIENT
  Age: 51 Year
  Sex: Male

DRUGS (5)
  1. THALOMID [Suspect]
     Indication: PLASMA CELL MYELOMA
     Dosage: 28 IN 28 D
     Dates: start: 201205, end: 20121201
  2. DEXAMETHASONE (DEXAMETHASONE) [Concomitant]
  3. COUMADIN (WARFARIN SODIUM) [Concomitant]
  4. METOPROLOL (METOPROLOL) [Concomitant]
  5. PEPCID (FAMOTIDINE) [Concomitant]

REACTIONS (2)
  - Pulmonary embolism [None]
  - Myocardial infarction [None]
